FAERS Safety Report 14474055 (Version 2)
Quarter: 2018Q1

REPORT INFORMATION
  Report Type: Spontaneous
  Country: RU (occurrence: RU)
  Receive Date: 20180201
  Receipt Date: 20180214
  Transmission Date: 20180509
  Serious: Yes (Hospitalization)
  Sender: FDA-Public Use
  Company Number: RU-ASTRAZENECA-2018SE12601

PATIENT
  Age: 71 Year
  Sex: Female
  Weight: 93 kg

DRUGS (9)
  1. PIRACETAM [Concomitant]
     Active Substance: PIRACETAM
  2. KETOCONAZOLE. [Concomitant]
     Active Substance: KETOCONAZOLE
  3. FORXIGA [Suspect]
     Active Substance: DAPAGLIFLOZIN
     Indication: TYPE 2 DIABETES MELLITUS
     Route: 048
     Dates: start: 201701
  4. MYDOCALM [Concomitant]
     Active Substance: TOLPERISONE
  5. THIOCTIC ACID [Concomitant]
     Active Substance: THIOCTIC ACID
  6. METFORMIN [Concomitant]
     Active Substance: METFORMIN HYDROCHLORIDE
  7. DIABETON MB [Concomitant]
     Active Substance: GLICLAZIDE
  8. MANINIL [Concomitant]
     Active Substance: GLYBURIDE
  9. CARDIOMAGNYL [Concomitant]
     Active Substance: ASPIRIN\MAGNESIUM HYDROXIDE

REACTIONS (2)
  - Acne [Unknown]
  - Furuncle [Not Recovered/Not Resolved]

NARRATIVE: CASE EVENT DATE: 201712
